FAERS Safety Report 10094305 (Version 1)
Quarter: 2014Q2

REPORT INFORMATION
  Report Type: Spontaneous
  Country: CA (occurrence: None)
  Receive Date: 20140421
  Receipt Date: 20140421
  Transmission Date: 20141212
  Serious: Yes (Disabling)
  Sender: FDA-Public Use
  Company Number: None

PATIENT
  Age: 67 Year
  Sex: Male
  Weight: 106.6 kg

DRUGS (1)
  1. APO-GABAPENTIN [Suspect]
     Indication: PAIN
     Route: 048
     Dates: start: 20140409, end: 20140415

REACTIONS (2)
  - Diplopia [None]
  - Extraocular muscle disorder [None]
